FAERS Safety Report 8112665-1 (Version None)
Quarter: 2011Q4

REPORT INFORMATION
  Report Type: 
  Country: None (occurrence: None)
  Receive Date: 20111227
  Receipt Date: 20111019
  Transmission Date: 20120403
  Serious: Yes (Other)
  Sender: FDA-Public Use
  Company Number: PHEH2011US07030

PATIENT
  Sex: Female

DRUGS (7)
  1. DEPO-PROVERA [Concomitant]
  2. INSPRA [Concomitant]
  3. GILENYA [Suspect]
     Indication: RELAPSING-REMITTING MULTIPLE SCLEROSIS
     Dosage: 0.5 MG, ORAL
     Route: 048
     Dates: start: 20111014, end: 20111014
  4. HYDRODIURIL [Concomitant]
  5. DESYREL [Concomitant]
  6. MICROZIDE [Concomitant]
  7. NORVASC [Concomitant]

REACTIONS (1)
  - ATRIOVENTRICULAR BLOCK FIRST DEGREE [None]
